FAERS Safety Report 4390826-5 (Version None)
Quarter: 2004Q3

REPORT INFORMATION
  Report Type: 
  Country: None (occurrence: None)
  Receive Date: 20040706
  Receipt Date: 20040706
  Transmission Date: 20050211
  Serious: Yes (Disabling, Other)
  Sender: FDA-Public Use
  Company Number: None

PATIENT
  Age: 34 Year
  Sex: Male
  Weight: 2.7216 kg

DRUGS (2)
  1. ZOLOFT [Suspect]
     Indication: PANIC ATTACK
     Dosage: 150 MG DAILY ORAL
     Route: 048
     Dates: start: 20040528, end: 20040605
  2. ZOLOFT [Suspect]
     Indication: RESPIRATION ABNORMAL
     Dosage: 150 MG DAILY ORAL
     Route: 048
     Dates: start: 20040528, end: 20040605

REACTIONS (7)
  - CONSTIPATION [None]
  - GAIT DISTURBANCE [None]
  - HALLUCINATION [None]
  - JOINT HYPEREXTENSION [None]
  - MUSCULAR WEAKNESS [None]
  - SOCIAL PHOBIA [None]
  - SUICIDAL IDEATION [None]
